FAERS Safety Report 8483000-4 (Version None)
Quarter: 2012Q3

REPORT INFORMATION
  Report Type: 
  Country: None (occurrence: None)
  Receive Date: 20120702
  Receipt Date: 20120621
  Transmission Date: 20120928
  Serious: Yes (Other)
  Sender: FDA-Public Use
  Company Number: US-JNJFOC-20120613533

PATIENT

DRUGS (8)
  1. MYCOPHENOLATE MOFETIL [Suspect]
     Indication: HISTOPLASMOSIS
     Route: 065
  2. CYCLOSPORINE [Suspect]
     Indication: HISTOPLASMOSIS
     Route: 065
  3. TACROLIMUS [Suspect]
     Indication: HISTOPLASMOSIS
     Route: 065
  4. ITRACONAZOLE [Suspect]
     Indication: HISTOPLASMOSIS
     Route: 048
  5. AZATHIOPRINE [Suspect]
     Indication: HISTOPLASMOSIS
     Route: 065
  6. AMPHOTERICIN B [Suspect]
     Indication: HISTOPLASMOSIS
     Route: 065
  7. CORTICOSTEROIDS [Suspect]
     Indication: HISTOPLASMOSIS
     Route: 065
  8. SIROLIMUS [Suspect]
     Indication: HISTOPLASMOSIS
     Route: 065

REACTIONS (2)
  - DRUG LEVEL BELOW THERAPEUTIC [None]
  - HISTOPLASMOSIS [None]
